FAERS Safety Report 9643876 (Version 2)
Quarter: 2014Q1

REPORT INFORMATION
  Report Type: Spontaneous
  Country: US (occurrence: US)
  Receive Date: 20131024
  Receipt Date: 20140106
  Transmission Date: 20141002
  Serious: Yes (Other)
  Sender: FDA-Public Use
  Company Number: US-PFIZER INC-2013302109

PATIENT
  Age: 51 Year
  Sex: Female

DRUGS (2)
  1. OXYCODONE/ACETAMINOPHEN [Suspect]
     Dosage: 5/325 MG, 35 TABLETS
  2. HYDROXYCHLOROQUINE [Suspect]
     Dosage: 200 MG, 60 TABLETS

REACTIONS (5)
  - Overdose [Recovered/Resolved]
  - Ventricular fibrillation [Recovered/Resolved]
  - Cardiotoxicity [Unknown]
  - Hypotension [Recovered/Resolved]
  - Somnolence [Unknown]
